FAERS Safety Report 17613043 (Version 2)
Quarter: 2020Q2

REPORT INFORMATION
  Report Type: Spontaneous
  Country: AU (occurrence: AU)
  Receive Date: 20200401
  Receipt Date: 20200414
  Transmission Date: 20200713
  Serious: Yes (Hospitalization, Other)
  Sender: FDA-Public Use
  Company Number: AU-INCYTE CORPORATION-2020IN003003

PATIENT

DRUGS (1)
  1. JAKAVI [Suspect]
     Active Substance: RUXOLITINIB
     Indication: PRODUCT USED FOR UNKNOWN INDICATION
     Dosage: TAKING HALF A 20MG TABLET INT HE MORNING AND 20MG AT NIGHT
     Route: 065

REACTIONS (3)
  - Fall [Unknown]
  - Joint instability [Unknown]
  - Pain [Unknown]
